FAERS Safety Report 8444363-9 (Version None)
Quarter: 2012Q2

REPORT INFORMATION
  Report Type: 
  Country: None (occurrence: None)
  Receive Date: 20120618
  Receipt Date: 20120605
  Transmission Date: 20120825
  Serious: Yes (Hospitalization)
  Sender: FDA-Public Use
  Company Number: FR-TEVA-342705ISR

PATIENT
  Sex: Male

DRUGS (2)
  1. FLUOROURACIL [Concomitant]
     Indication: ADENOCARCINOMA
     Route: 042
     Dates: start: 20110810, end: 20111021
  2. OXALIPLATIN [Suspect]
     Indication: GASTRIC CANCER
     Route: 042
     Dates: start: 20110810, end: 20111021

REACTIONS (2)
  - TRANSAMINASES INCREASED [None]
  - VENOOCCLUSIVE LIVER DISEASE [None]
